FAERS Safety Report 9639267 (Version 4)
Quarter: 2014Q2

REPORT INFORMATION
  Report Type: Report from Study
  Country: BE (occurrence: BE)
  Receive Date: 20131022
  Receipt Date: 20140417
  Transmission Date: 20141212
  Serious: Yes (Death, Hospitalization)
  Sender: FDA-Public Use
  Company Number: BE-B.I. PHARMACEUTICALS,INC./RIDGEFIELD-2012-EU-04645EU

PATIENT
  Age: 54 Year
  Sex: Male
  Weight: 57 kg

DRUGS (2)
  1. BIBW 2992 [Suspect]
     Indication: SQUAMOUS CELL CARCINOMA OF HEAD AND NECK
     Dosage: 40 MG
     Route: 048
     Dates: start: 20120830, end: 20120919
  2. TRIAL PROCEDURE [Suspect]
     Indication: SQUAMOUS CELL CARCINOMA
     Route: 065

REACTIONS (16)
  - Malignant neoplasm progression [Fatal]
  - Hypercalcaemia [Recovered/Resolved]
  - Renal failure acute [Recovered/Resolved]
  - Vomiting [Recovered/Resolved]
  - Vomiting [Recovered/Resolved]
  - Fatigue [Unknown]
  - Decreased appetite [Unknown]
  - Paronychia [Unknown]
  - Skin fissures [Unknown]
  - Nausea [Unknown]
  - Dyspnoea [Not Recovered/Not Resolved]
  - Confusional state [Unknown]
  - Chest pain [Unknown]
  - Rash [Recovered/Resolved]
  - Anaemia [Recovered/Resolved]
  - Oedema peripheral [Recovered/Resolved]
